FAERS Safety Report 10042800 (Version 1)
Quarter: 2014Q1

REPORT INFORMATION
  Report Type: Report from Study
  Country: JP (occurrence: JP)
  Receive Date: 20140327
  Receipt Date: 20140327
  Transmission Date: 20141002
  Serious: Yes (Hospitalization, Other)
  Sender: FDA-Public Use
  Company Number: JP-TAKEDA-2014TUS002369

PATIENT
  Sex: 0

DRUGS (15)
  1. FEBURIC [Suspect]
     Indication: HYPERURICAEMIA
     Dosage: 20 MG, QD
     Route: 048
     Dates: start: 20130115
  2. URINORM [Suspect]
     Indication: HYPERURICAEMIA
     Dosage: 50 MG, QD
     Route: 048
     Dates: start: 20111011, end: 20131029
  3. BAYASPIRIN [Concomitant]
     Dosage: 100 MG, QD
     Route: 048
     Dates: start: 20070215
  4. MEVALOTIN [Concomitant]
     Dosage: 10 MG, QD
     Route: 048
     Dates: start: 20070412, end: 20131202
  5. MEVALOTIN [Concomitant]
     Dosage: 5 MG, QD
     Route: 048
     Dates: start: 20131203
  6. MAGMITT [Concomitant]
     Dosage: 500 MG, QD
     Route: 048
     Dates: start: 20101222
  7. LASIX                              /00032601/ [Concomitant]
     Dosage: 20 MG, QD
     Route: 048
     Dates: start: 20131029
  8. DIOVAN [Concomitant]
     Dosage: 160 MG, QD
     Route: 048
     Dates: start: 20070215
  9. TANATRIL [Concomitant]
     Dosage: 10 MG, QD
     Route: 048
     Dates: start: 20070215
  10. NORVASC [Concomitant]
     Dosage: 10 MG, QD
     Route: 048
     Dates: start: 20071010
  11. EPADEL-S [Concomitant]
     Dosage: 2 DF, QD
     Route: 048
     Dates: start: 20090106, end: 20140120
  12. PLETAAL [Concomitant]
     Dosage: 100 MG, QD
     Route: 048
     Dates: start: 20110125
  13. BIOFERMIN                          /01617201/ [Concomitant]
     Dosage: 2 DF, QD
     Route: 048
     Dates: start: 20091222
  14. FERROMIA                           /00023520/ [Concomitant]
     Dosage: 100 MG, QD
     Route: 048
     Dates: start: 20070215
  15. FLUITRAN [Concomitant]
     Dosage: 2 MG, QD
     Route: 048
     Dates: start: 20080326, end: 20131028

REACTIONS (1)
  - Lung neoplasm malignant [Recovered/Resolved]
